FAERS Safety Report 17715877 (Version 1)
Quarter: 2020Q2

REPORT INFORMATION
  Report Type: Report from Study
  Country: IR (occurrence: IR)
  Receive Date: 20200428
  Receipt Date: 20200428
  Transmission Date: 20200714
  Serious: Yes (Death, Hospitalization)
  Sender: FDA-Public Use
  Company Number: IR-SUN PHARMACEUTICAL INDUSTRIES LTD-2020R1-244618

PATIENT
  Age: 16 Year
  Sex: Female

DRUGS (1)
  1. IBUPROFEN. [Suspect]
     Active Substance: IBUPROFEN
     Indication: INTENTIONAL PRODUCT MISUSE
     Dosage: AMOUNT OF DRUG WAS UNDER 200 MG/KG
     Route: 048

REACTIONS (6)
  - Seizure [Unknown]
  - Respiratory acidosis [Unknown]
  - Cardiac arrest [Fatal]
  - Agitation [Unknown]
  - Acute kidney injury [Unknown]
  - Renal vessel disorder [Unknown]
